FAERS Safety Report 25751224 (Version 3)
Quarter: 2025Q4

REPORT INFORMATION
  Report Type: Spontaneous
  Country: US (occurrence: US)
  Receive Date: 20250902
  Receipt Date: 20251118
  Transmission Date: 20260118
  Serious: Yes (Hospitalization)
  Sender: ORPHAZYME
  Company Number: US-ZEVRA DENMARK A/S-ORP-000567

PATIENT
  Age: 15 Year
  Sex: Female

DRUGS (6)
  1. MIPLYFFA [Suspect]
     Active Substance: ARIMOCLOMOL CITRATE
     Indication: Niemann-Pick disease
     Dosage: 93 MILLIGRAM, TID
     Route: 048
     Dates: start: 202105
  2. ZAVESCA [Concomitant]
     Active Substance: MIGLUSTAT
     Indication: Niemann-Pick disease
     Dosage: 200 MILLIGRAM, TID
     Dates: start: 202103
  3. LAMOTRIGINE [Concomitant]
     Active Substance: LAMOTRIGINE
     Indication: Seizure
     Dosage: 125 MILLIGRAM, BID
     Dates: start: 202105
  4. WAKIX [Concomitant]
     Active Substance: PITOLISANT HYDROCHLORIDE
     Indication: Cataplexy
     Dosage: 4.45 MG, 2 OR 3 TABLETS
     Dates: start: 202411
  5. XYREM [Concomitant]
     Active Substance: SODIUM OXYBATE
     Indication: Sleep disorder
     Dosage: 2.5 GRAM, QD
     Dates: start: 202304
  6. XYREM [Concomitant]
     Active Substance: SODIUM OXYBATE
     Indication: Cataplexy

REACTIONS (2)
  - Myocardial oedema [Recovered/Resolved]
  - Pulmonary oedema [Recovered/Resolved]

NARRATIVE: CASE EVENT DATE: 20250815
